FAERS Safety Report 9442036 (Version 3)
Quarter: 2013Q4

REPORT INFORMATION
  Report Type: Spontaneous
  Country: AT (occurrence: AT)
  Receive Date: 20130806
  Receipt Date: 20131001
  Transmission Date: 20140711
  Serious: Yes (Hospitalization, Other)
  Sender: FDA-Public Use
  Company Number: AT-ALEXION PHARMACEUTICALS INC.-A201301747

PATIENT
  Age: 30 Year
  Sex: Female
  Weight: 44 kg

DRUGS (16)
  1. SOLIRIS 300MG [Suspect]
     Indication: HAEMOLYTIC URAEMIC SYNDROME
     Dosage: 900 MG, QW
     Route: 042
     Dates: start: 20130621, end: 20130712
  2. SOLIRIS 300MG [Suspect]
     Dosage: 1200 MG, Q2W
     Route: 042
     Dates: start: 20130718
  3. URBASON [Concomitant]
     Indication: SYSTEMIC LUPUS ERYTHEMATOSUS
     Dosage: 20 MG, UNK
     Route: 048
  4. MYFENAXL [Concomitant]
     Indication: SYSTEMIC LUPUS ERYTHEMATOSUS
     Dosage: 1000 MG, UNK
     Route: 048
  5. COTRIBENE [Concomitant]
     Indication: ANTIFUNGAL PROPHYLAXIS
     Dosage: 800 MG/160 MG,UNK
     Route: 048
  6. QUENSYL [Concomitant]
     Indication: SYSTEMIC LUPUS ERYTHEMATOSUS
     Dosage: 200 MG. UNK
     Route: 048
  7. LOVENOX [Concomitant]
     Indication: PROPHYLAXIS
     Dosage: 40 MG ON DAYS W/O DIALYSIS
     Route: 058
  8. AMLODIPINE [Concomitant]
     Indication: PRODUCT USED FOR UNKNOWN INDICATION
     Dosage: 10 MG, UNK
     Route: 048
  9. ITERIUM [Concomitant]
     Indication: RENAL FAILURE
     Dosage: 1 MG, UNK
     Route: 048
  10. PANTOLOC [Concomitant]
     Indication: PROPHYLAXIS AGAINST GASTROINTESTINAL ULCER
     Dosage: 40 MG, UNK
     Route: 048
  11. MAXI-KALZ VIT D3 [Concomitant]
     Indication: OSTEOPOROSIS
     Dosage: UNK
     Route: 048
  12. EUTHYROX [Concomitant]
     Indication: HYPERTHYROIDISM
     Dosage: UNK
     Route: 048
  13. TRITTICO [Concomitant]
     Indication: PRODUCT USED FOR UNKNOWN INDICATION
     Dosage: UNK
     Route: 048
  14. ERYPO [Concomitant]
     Indication: HAEMODIALYSIS
     Dosage: 6000 IU DURING DIALYSIS
  15. FERRLECIT [Concomitant]
     Indication: HAEMODIALYSIS
     Dosage: UNK
  16. ACULAR AUGENTROPFEN [Concomitant]
     Indication: RETINOPATHY
     Dosage: 5 MG/ML, UNK
     Route: 031

REACTIONS (6)
  - Haptoglobin abnormal [Unknown]
  - Blood lactate dehydrogenase increased [Unknown]
  - Red blood cell schistocytes present [Unknown]
  - Haemolysis [Unknown]
  - Thrombocytopenia [Unknown]
  - Drug ineffective [Unknown]
